FAERS Safety Report 4774562-9 (Version None)
Quarter: 2005Q3

REPORT INFORMATION
  Report Type: 
  Country: None (occurrence: None)
  Receive Date: 20050921
  Receipt Date: 20050912
  Transmission Date: 20060218
  Serious: Yes (Other)
  Sender: FDA-Public Use
  Company Number: PHNU2005DE03121

PATIENT
  Age: 54 Year
  Sex: Female

DRUGS (1)
  1. ZOMETA [Suspect]
     Indication: BREAST CANCER
     Dosage: MONTHLY INFUSIONS

REACTIONS (6)
  - ASEPTIC NECROSIS BONE [None]
  - DENTAL OPERATION [None]
  - FISTULA [None]
  - IMPAIRED HEALING [None]
  - INFECTION [None]
  - TOOTH EXTRACTION [None]
